FAERS Safety Report 8505785 (Version 3)
Quarter: 2013Q1

REPORT INFORMATION
  Report Type: Spontaneous
  Country: US (occurrence: US)
  Receive Date: 20120412
  Receipt Date: 20130214
  Transmission Date: 20140127
  Serious: Yes (Life-Threatening, Hospitalization, Other)
  Sender: FDA-Public Use
  Company Number: US-BAYER-2012-032907

PATIENT
  Age: 45 Year
  Sex: Female
  Weight: 95 kg

DRUGS (11)
  1. YASMIN [Suspect]
     Indication: PREMENSTRUAL DYSPHORIC DISORDER
     Dosage: UNK
     Dates: start: 200311, end: 20040125
  2. YAZ [Suspect]
  3. ANTIDEPRESSANTS [Concomitant]
     Indication: DEPRESSION
     Dosage: UNK
     Dates: start: 1995
  4. ATENENTOL [Concomitant]
     Indication: PAIN PROPHYLAXIS
     Dosage: 25 MG, DAILY
     Route: 048
     Dates: start: 2000
  5. ATENENTOL [Concomitant]
     Indication: PAIN PROPHYLAXIS
     Dosage: UNK
     Dates: start: 20031116
  6. ATENENTOL [Concomitant]
     Indication: PAIN PROPHYLAXIS
     Dosage: UNK
     Dates: start: 20031217
  7. PRILOSEC [Concomitant]
     Indication: GASTROOESOPHAGEAL REFLUX DISEASE
     Dosage: 20 MG, HS
     Route: 048
     Dates: start: 2000
  8. PRILOSEC [Concomitant]
     Indication: GASTROOESOPHAGEAL REFLUX DISEASE
     Dosage: UNK
     Dates: start: 20031116
  9. PENICILLIN VK [Concomitant]
     Indication: STREPTOBACILLUS INFECTION
     Dosage: 500 MG, BID FOR 10 DAYS
     Dates: start: 20031116
  10. ZOLOFT [Concomitant]
     Indication: PREMENSTRUAL SYNDROME
     Dosage: 100 MG, BID
     Route: 048
     Dates: start: 20031116
  11. ASPIRIN [Concomitant]
     Indication: HEADACHE
     Dosage: DAILY

REACTIONS (11)
  - Pulmonary embolism [None]
  - Lung disorder [None]
  - Chest pain [None]
  - Dyspnoea [None]
  - Post-traumatic stress disorder [None]
  - Anxiety [None]
  - Injury [None]
  - Fear [None]
  - Emotional distress [None]
  - Pain [None]
  - Off label use [None]
